FAERS Safety Report 4349675-6 (Version None)
Quarter: 2004Q1

REPORT INFORMATION
  Report Type: 
  Country: None (occurrence: None)
  Receive Date: 20040329
  Receipt Date: 20040211
  Transmission Date: 20041129
  Serious: No
  Sender: FDA-Public Use
  Company Number: USA030127410

PATIENT
  Age: 11 Year
  Sex: Female
  Weight: 57 kg

DRUGS (2)
  1. STRATTERA [Suspect]
     Indication: ATTENTION DEFICIT/HYPERACTIVITY DISORDER
     Dosage: 100 MG/DAY
     Dates: start: 20030125
  2. ADDERALL 10 [Concomitant]

REACTIONS (13)
  - ANXIETY [None]
  - DAYDREAMING [None]
  - DECREASED APPETITE [None]
  - DEPRESSED MOOD [None]
  - DEPRESSION [None]
  - DISTURBANCE IN ATTENTION [None]
  - FATIGUE [None]
  - FEELING ABNORMAL [None]
  - IRRITABILITY [None]
  - MEMORY IMPAIRMENT [None]
  - PRESCRIBED OVERDOSE [None]
  - SOMNOLENCE [None]
  - VOMITING [None]
